FAERS Safety Report 7391008-5 (Version None)
Quarter: 2011Q2

REPORT INFORMATION
  Report Type: 
  Country: None (occurrence: None)
  Receive Date: 20110404
  Receipt Date: 20110318
  Transmission Date: 20111010
  Serious: No
  Sender: FDA-Public Use
  Company Number: KR-JNJFOC-20110308946

PATIENT
  Age: 78 Year
  Sex: Female

DRUGS (1)
  1. DURAGESIC-100 [Suspect]
     Indication: ARTHRALGIA
     Route: 062

REACTIONS (6)
  - DECREASED APPETITE [None]
  - TREMOR [None]
  - WITHDRAWAL SYNDROME [None]
  - INSOMNIA [None]
  - WEIGHT DECREASED [None]
  - TREATMENT NONCOMPLIANCE [None]
